FAERS Safety Report 17420658 (Version 3)
Quarter: 2021Q1

REPORT INFORMATION
  Report Type: Report from Study
  Country: BR (occurrence: BR)
  Receive Date: 20200214
  Receipt Date: 20210223
  Transmission Date: 20210419
  Serious: Yes (Hospitalization)
  Sender: FDA-Public Use
  Company Number: BR-ASTRAZENECA-2019SE86492

PATIENT
  Age: 26181 Day
  Sex: Male

DRUGS (30)
  1. DRAMIN B6 (50MG DIMENHYDRINATE AND 10MG PYRIDOXINE HYDROCHLORIDE) [Concomitant]
     Indication: NAUSEA
     Dosage: 10.0ML ONCE/SINGLE ADMINISTRATION
     Route: 042
     Dates: start: 20190521, end: 20190521
  2. PACLITAXEL. [Suspect]
     Active Substance: PACLITAXEL
     Indication: NON-SMALL CELL LUNG CANCER STAGE III
     Dosage: 50.0 MG/M2
     Route: 065
     Dates: start: 20190521, end: 20190521
  3. SEKI SYRUP [Concomitant]
     Indication: COUGH
     Route: 048
     Dates: start: 20190606, end: 20190609
  4. DIPYRONE [Concomitant]
     Active Substance: DIPYRONE
     Indication: PNEUMONIA
     Route: 048
     Dates: end: 20190524
  5. AKYNZEO [Concomitant]
     Active Substance: NETUPITANT\PALONOSETRON HYDROCHLORIDE
     Indication: CHEMOTHERAPY SIDE EFFECT PROPHYLAXIS
     Dosage: 300.56MG EVERY CYCLE
     Route: 042
     Dates: start: 20190605
  6. DURVALUMAB. [Suspect]
     Active Substance: DURVALUMAB
     Indication: NON-SMALL CELL LUNG CANCER STAGE III
     Route: 042
     Dates: start: 20190514, end: 20190514
  7. CARBOPLATIN. [Suspect]
     Active Substance: CARBOPLATIN
     Indication: NON-SMALL CELL LUNG CANCER STAGE III
     Dosage: 2.0 AUC
     Route: 065
     Dates: start: 20190514, end: 20190514
  8. ROUVASTATIN [Concomitant]
     Active Substance: ROSUVASTATIN
     Indication: CAROTID ARTERY STENOSIS
     Route: 048
     Dates: end: 20190609
  9. DOXAZOSIN [Concomitant]
     Active Substance: DOXAZOSIN MESYLATE
     Indication: BENIGN PROSTATIC HYPERPLASIA
     Route: 048
  10. CARBOPLATIN. [Suspect]
     Active Substance: CARBOPLATIN
     Indication: NON-SMALL CELL LUNG CANCER STAGE III
     Dosage: 2.0 AUC
     Route: 065
     Dates: start: 20190605, end: 20190605
  11. DIMENHYDRINATE. [Concomitant]
     Active Substance: DIMENHYDRINATE
     Indication: NAUSEA
     Route: 048
     Dates: start: 20190518, end: 20190519
  12. PACLITAXEL. [Suspect]
     Active Substance: PACLITAXEL
     Indication: NON-SMALL CELL LUNG CANCER STAGE III
     Dosage: 50.0 MG/M2
     Route: 065
     Dates: start: 20190605, end: 20190605
  13. RADIATION THERAPY [Suspect]
     Active Substance: RADIATION THERAPY
     Indication: NON-SMALL CELL LUNG CANCER STAGE III
     Dosage: DOSE PER FRACTION: 2 GY, NO OF FRACTION DOSES TOTAL) 30,
     Route: 065
     Dates: start: 20190514, end: 20190705
  14. BECLOMETHASONE [Concomitant]
     Active Substance: BECLOMETHASONE
     Indication: CHRONIC OBSTRUCTIVE PULMONARY DISEASE
     Dosage: 100UG/INHAL
  15. LOPERAMIDE [Concomitant]
     Active Substance: LOPERAMIDE
     Indication: DIARRHOEA
     Route: 048
     Dates: start: 20190516, end: 20190516
  16. EMEND [Concomitant]
     Active Substance: APREPITANT
     Indication: CHEMOTHERAPY SIDE EFFECT PROPHYLAXIS
     Dosage: 150.0MG EVERY CYCLE
     Route: 042
     Dates: start: 20190521
  17. DIPYRONE [Concomitant]
     Active Substance: DIPYRONE
     Indication: ARTHRALGIA
     Route: 048
     Dates: end: 20190524
  18. CARBOPLATIN. [Suspect]
     Active Substance: CARBOPLATIN
     Indication: NON-SMALL CELL LUNG CANCER STAGE III
     Dosage: 2.0 AUC
     Route: 065
     Dates: start: 20190529, end: 20190529
  19. DEXAMETHASONE. [Concomitant]
     Active Substance: DEXAMETHASONE
     Indication: CHEMOTHERAPY SIDE EFFECT PROPHYLAXIS
     Dosage: 10.0MG EVERY CYCLE
     Route: 042
     Dates: start: 20190521, end: 20190605
  20. DRAMIN B6 [Concomitant]
     Active Substance: DIMENHYDRINATE\PYRIDOXINE HYDROCHLORIDE
     Indication: NAUSEA
     Dosage: 1.000 AMPOULE ONCE/SINGLE ADMINISTRATION
     Route: 042
     Dates: start: 20190521, end: 20190521
  21. CARBOPLATIN. [Suspect]
     Active Substance: CARBOPLATIN
     Indication: NON-SMALL CELL LUNG CANCER STAGE III
     Dosage: 2.0 AUC
     Route: 065
     Dates: start: 20190521, end: 20190521
  22. PACLITAXEL. [Suspect]
     Active Substance: PACLITAXEL
     Indication: NON-SMALL CELL LUNG CANCER STAGE III
     Dosage: 50.0 MG/M2
     Route: 065
     Dates: start: 20190529, end: 20190529
  23. FINASTERIDE. [Concomitant]
     Active Substance: FINASTERIDE
     Indication: BENIGN PROSTATIC HYPERPLASIA
     Route: 048
  24. ONDANSETRON [Concomitant]
     Active Substance: ONDANSETRON
     Indication: CHEMOTHERAPY SIDE EFFECT PROPHYLAXIS
     Dosage: 8.0MG EVERY CYCLE
     Route: 042
     Dates: start: 20190521
  25. RANITIDINE. [Concomitant]
     Active Substance: RANITIDINE
     Indication: CHEMOTHERAPY SIDE EFFECT PROPHYLAXIS
     Dosage: 50.0MG EVERY CYCLE
     Route: 042
     Dates: start: 20190521
  26. PACLITAXEL. [Suspect]
     Active Substance: PACLITAXEL
     Indication: NON-SMALL CELL LUNG CANCER STAGE III
     Dosage: 50.0 MG/M2
     Route: 065
     Dates: start: 20190514, end: 20190514
  27. FORMOTEROL [Concomitant]
     Active Substance: FORMOTEROL
     Indication: CHRONIC OBSTRUCTIVE PULMONARY DISEASE
     Dosage: 6UG/INHAL THREE TIMES A DAY
     Route: 055
  28. DIMENHYDRINATE. [Concomitant]
     Active Substance: DIMENHYDRINATE
     Indication: NAUSEA
     Route: 048
     Dates: start: 20190520
  29. ONDANSETRON [Concomitant]
     Active Substance: ONDANSETRON
     Indication: DYSPEPSIA
     Dosage: 8.0MG EVERY CYCLE
     Route: 042
     Dates: start: 20190521
  30. DICLOFENATE DIETHYLAMMONIUM [Concomitant]
     Indication: ARTHRALGIA
     Dosage: 3.000 COFFE SPOON THREE TIMES A DAY
     Route: 061
     Dates: end: 20190518

REACTIONS (1)
  - Febrile neutropenia [Recovered/Resolved]

NARRATIVE: CASE EVENT DATE: 20190609
